FAERS Safety Report 12390444 (Version 2)
Quarter: 2016Q3

REPORT INFORMATION
  Report Type: Spontaneous
  Country: ES (occurrence: ES)
  Receive Date: 20160520
  Receipt Date: 20160809
  Transmission Date: 20161109
  Serious: Yes (Hospitalization, Other)
  Sender: FDA-Public Use
  Company Number: PHHY2016ES066491

PATIENT
  Age: 80 Year
  Sex: Female

DRUGS (3)
  1. MYCOPHENOLATE MOFETIL. [Suspect]
     Active Substance: MYCOPHENOLATE MOFETIL
     Indication: IMMUNOSUPPRESSION
     Dosage: 1500 MG, QD
     Route: 065
     Dates: start: 2004
  2. CICLOSPORIN [Suspect]
     Active Substance: CYCLOSPORINE
     Indication: IMMUNOSUPPRESSION
     Dosage: 75 MG, QD
     Route: 065
     Dates: start: 2004
  3. CICLOSPORIN [Suspect]
     Active Substance: CYCLOSPORINE
     Dates: start: 2004

REACTIONS (2)
  - Angiosarcoma [Unknown]
  - Metastases to peritoneum [Unknown]
